FAERS Safety Report 5334651-7 (Version None)
Quarter: 2007Q2

REPORT INFORMATION
  Report Type: 
  Country: None (occurrence: None)
  Receive Date: 20070525
  Receipt Date: 20070522
  Transmission Date: 20071010
  Serious: Yes (Other)
  Sender: FDA-Public Use
  Company Number: B0469553A

PATIENT
  Age: 15 Year
  Sex: Female

DRUGS (2)
  1. RELENZA [Suspect]
     Indication: INFLUENZA
     Dosage: 10MG PER DAY
     Route: 055
     Dates: start: 20070424, end: 20070424
  2. CALONAL [Concomitant]
     Route: 048

REACTIONS (2)
  - DELIRIUM [None]
  - FEELING ABNORMAL [None]
